FAERS Safety Report 19728863 (Version 2)
Quarter: 2021Q3

REPORT INFORMATION
  Report Type: Report from Study
  Country: IT (occurrence: IT)
  Receive Date: 20210820
  Receipt Date: 20210901
  Transmission Date: 20211014
  Serious: Yes (Hospitalization)
  Sender: FDA-Public Use
  Company Number: IT-MYLANLABS-2021M1053053

PATIENT
  Age: 78 Year
  Sex: Female

DRUGS (8)
  1. PANTOPRAZOLE [Concomitant]
     Active Substance: PANTOPRAZOLE
     Dosage: UNK
  2. EUTIROX [Concomitant]
     Active Substance: LEVOTHYROXINE SODIUM
     Dosage: UNK
  3. POTASSIUM CHLORIDE. [Concomitant]
     Active Substance: POTASSIUM CHLORIDE
     Dosage: UNK
  4. AMIODARONE [Interacting]
     Active Substance: AMIODARONE
     Indication: HYPERTENSION
     Dosage: 200 MILLIGRAM, QD
     Route: 048
     Dates: start: 20210121
  5. COUMADIN [Concomitant]
     Active Substance: WARFARIN SODIUM
     Dosage: UNK
  6. FUROSEMIDE. [Interacting]
     Active Substance: FUROSEMIDE
     Indication: PULMONARY OEDEMA
     Dosage: 250 MILLIGRAM, QD
     Route: 048
     Dates: start: 20210121
  7. BISOPROLOL [Suspect]
     Active Substance: BISOPROLOL
     Indication: ARRHYTHMIA
     Dosage: 10 MILLIGRAM, QD
     Route: 048
     Dates: start: 20210121
  8. ZAROXOLYN [Interacting]
     Active Substance: METOLAZONE
     Indication: HYPERTENSION
     Dosage: 20 MILLIGRAM, QW
     Route: 048
     Dates: start: 20210121

REACTIONS (5)
  - Hypotension [Recovering/Resolving]
  - Drug interaction [Recovering/Resolving]
  - Hypokinesia [Recovering/Resolving]
  - Bradyphrenia [Recovering/Resolving]
  - Syncope [Recovering/Resolving]

NARRATIVE: CASE EVENT DATE: 20210126
